FAERS Safety Report 21290196 (Version 2)
Quarter: 2022Q3

REPORT INFORMATION
  Report Type: Spontaneous
  Country: IT (occurrence: IT)
  Receive Date: 20220902
  Receipt Date: 20220910
  Transmission Date: 20221027
  Serious: Yes (Death)
  Sender: FDA-Public Use
  Company Number: None

PATIENT
  Age: 88 Year
  Sex: Female

DRUGS (10)
  1. MOLNUPIRAVIR [Suspect]
     Active Substance: MOLNUPIRAVIR
     Indication: COVID-19
     Dosage: RECOMMENDED DOSE IS FOUR 200 MG HARD CAPSULES, EVERY 12 HOURS (800MG / DAY) FOR 5 DAYS (STRENGHT: 20
     Route: 048
     Dates: start: 20220707, end: 20220712
  2. BISOPROLOL [Concomitant]
     Active Substance: BISOPROLOL
     Indication: Hypertension
     Dosage: CONGESCOR * 28 COATED TABLETS 2,5MG - BISOPROLOL (PA)
     Route: 048
  3. RIFAXIMIN [Concomitant]
     Active Substance: RIFAXIMIN
     Indication: Diarrhoea
     Dosage: AD 12 COATED TABLETS 200MG - RIFAXIMINA (PA)
     Route: 048
  4. LOPERAMIDE [Concomitant]
     Active Substance: LOPERAMIDE
     Indication: Diarrhoea
     Route: 048
  5. PANTOPRAZOLE SODIUM [Concomitant]
     Active Substance: PANTOPRAZOLE SODIUM
     Indication: Gastrooesophageal reflux disease
     Dosage: PANTORC * 28 GASTRORESISTANT TABLETS 20MG - PANTOPRAZOLE (PA)
     Route: 048
  6. LASIX [Concomitant]
     Active Substance: FUROSEMIDE
     Indication: Hypertension
     Dosage: LASIX * 25MG 30 TABLETS- FUROSEMIDE (PA)
     Route: 048
  7. POTASSIUM CHLORIDE [Concomitant]
     Active Substance: POTASSIUM CHLORIDE
     Indication: Atrial fibrillation
     Dosage: KCL RETARD * 40 TABLETS 600MG RP - POTASSIUM CHLORIDE (PA)
     Route: 048
  8. EDOXABAN TOSYLATE [Concomitant]
     Active Substance: EDOXABAN TOSYLATE
     Indication: Atrial fibrillation
     Dosage: LIXIANA * 28 COATED TABLETS 30MG - EDOXABAN (PA)
     Route: 048
  9. CALCIUM CARBONATE\CHOLECALCIFEROL [Concomitant]
     Active Substance: CALCIUM CARBONATE\CHOLECALCIFEROL
     Indication: Osteoporosis
     Dosage: CACIT VIT D3 * 30BUST 1G + 880UI - CALCIUM CARBONATE + CHOLECALCIFEROL (PA)
     Route: 048
  10. ALLOPURINOLO MYLAN [Concomitant]
     Indication: Hyperuricaemia
     Dosage: ALLOPURINOL MY * 30 TABLETS 300MG - ALLOPURINOL (PA)
     Route: 048

REACTIONS (1)
  - Cardiac arrest [Fatal]

NARRATIVE: CASE EVENT DATE: 20220726
